FAERS Safety Report 5200285-8 (Version None)
Quarter: 2007Q1

REPORT INFORMATION
  Report Type: 
  Country: None (occurrence: None)
  Receive Date: 20070105
  Receipt Date: 20070102
  Transmission Date: 20070707
  Serious: Yes (Other)
  Sender: FDA-Public Use
  Company Number: US-PFIZER INC-2006124607

PATIENT
  Sex: Male
  Weight: 90.7 kg

DRUGS (4)
  1. GEODON [Suspect]
     Indication: SCHIZOAFFECTIVE DISORDER
     Dosage: DAILY DOSE:120MG
     Dates: start: 20060628, end: 20060801
  2. ZYPREXA [Suspect]
     Indication: PERSONALITY DISORDER
     Dates: start: 20060801
  3. LEXAPRO [Concomitant]
     Route: 048
  4. METFORMIN HCL [Concomitant]

REACTIONS (6)
  - ALBUMIN GLOBULIN RATIO ABNORMAL [None]
  - DEPRESSION [None]
  - FATIGUE [None]
  - LIPIDS ABNORMAL [None]
  - PALPITATIONS [None]
  - WEIGHT INCREASED [None]
